FAERS Safety Report 5520244-5 (Version None)
Quarter: 2007Q4

REPORT INFORMATION
  Report Type: 
  Country: None (occurrence: None)
  Receive Date: 20071116
  Receipt Date: 20071114
  Transmission Date: 20080405
  Serious: Yes (Death, Hospitalization)
  Sender: FDA-Public Use
  Company Number: PHHO2006PL00602

PATIENT
  Age: 80 Year
  Sex: Female
  Weight: 72.9 kg

DRUGS (4)
  1. ZOLEDRONIC ACID [Suspect]
     Indication: OSTEOPOROSIS POSTMENOPAUSAL
     Dosage: DOUBLE BLIND
     Route: 042
     Dates: start: 20050916
  2. CALCIUM [Concomitant]
     Indication: OSTEOPOROSIS POSTMENOPAUSAL
  3. VITAMIN D [Concomitant]
     Indication: OSTEOPOROSIS POSTMENOPAUSAL
  4. DICLOFENAC SODIUM [Suspect]

REACTIONS (24)
  - ASTHENIA [None]
  - BLOOD CREATININE ABNORMAL [None]
  - BLOOD POTASSIUM ABNORMAL [None]
  - BLOOD UREA [None]
  - C-REACTIVE PROTEIN INCREASED [None]
  - CARDIAC FAILURE CHRONIC [None]
  - CARDIAC FAILURE CONGESTIVE [None]
  - CONCOMITANT DISEASE PROGRESSION [None]
  - COUGH [None]
  - DEHYDRATION [None]
  - DYSPNOEA [None]
  - DYSPNOEA EXERTIONAL [None]
  - INFLAMMATION [None]
  - LEUKOCYTOSIS [None]
  - LOWER RESPIRATORY TRACT INFLAMMATION [None]
  - MYOCARDIAL INFARCTION [None]
  - PNEUMONIA [None]
  - POLLAKIURIA [None]
  - PULMONARY CONGESTION [None]
  - PYREXIA [None]
  - RALES [None]
  - RED BLOOD CELL SEDIMENTATION RATE INCREASED [None]
  - RENAL FAILURE [None]
  - RESPIRATORY FAILURE [None]
